FAERS Safety Report 7238013-7 (Version None)
Quarter: 2011Q1

REPORT INFORMATION
  Report Type: 
  Country: None (occurrence: None)
  Receive Date: 20110121
  Receipt Date: 20110113
  Transmission Date: 20110831
  Serious: Yes (Hospitalization, Disabling)
  Sender: FDA-Public Use
  Company Number: A0891399A

PATIENT
  Age: 49 Year
  Sex: Female

DRUGS (6)
  1. IRON SUPPLEMENT [Concomitant]
  2. NORTRIPTYLINE [Concomitant]
  3. SYNTHROID [Concomitant]
  4. PAXIL [Suspect]
     Indication: DEPRESSION
     Dosage: 20MG PER DAY
     Route: 048
     Dates: start: 20020119
  5. DIAZEPAM [Concomitant]
  6. FOLIC ACID [Concomitant]

REACTIONS (42)
  - NIGHT SWEATS [None]
  - JOINT SWELLING [None]
  - ABNORMAL BEHAVIOUR [None]
  - DELUSION [None]
  - MYALGIA [None]
  - VISUAL IMPAIRMENT [None]
  - ABNORMAL DREAMS [None]
  - MEMORY IMPAIRMENT [None]
  - DISTURBANCE IN ATTENTION [None]
  - MENTAL DISORDER [None]
  - RASH [None]
  - HEADACHE [None]
  - PARANOIA [None]
  - HYPERTHYROIDISM [None]
  - FIBROCYSTIC BREAST DISEASE [None]
  - WEIGHT INCREASED [None]
  - SEXUAL DYSFUNCTION [None]
  - VERTIGO [None]
  - AKATHISIA [None]
  - PRODUCT QUALITY ISSUE [None]
  - INSOMNIA [None]
  - FEAR [None]
  - ALOPECIA [None]
  - HALLUCINATION [None]
  - PARAESTHESIA [None]
  - CONFUSIONAL STATE [None]
  - HEART RATE IRREGULAR [None]
  - NAUSEA [None]
  - DYSKINESIA [None]
  - PALPITATIONS [None]
  - MENTAL STATUS CHANGES [None]
  - FEELING JITTERY [None]
  - THINKING ABNORMAL [None]
  - SYNCOPE [None]
  - DEPENDENCE [None]
  - OVARIAN CYST [None]
  - DIABETES MELLITUS [None]
  - PANIC ATTACK [None]
  - WITHDRAWAL SYNDROME [None]
  - DYSPHAGIA [None]
  - DIZZINESS [None]
  - MOOD SWINGS [None]
